FAERS Safety Report 21036096 (Version 1)
Quarter: 2022Q3

REPORT INFORMATION
  Report Type: Spontaneous
  Country: US (occurrence: US)
  Receive Date: 20220701
  Receipt Date: 20220701
  Transmission Date: 20221027
  Serious: No
  Sender: FDA-Public Use
  Company Number: US-THERAPEUTICSMD-2022TMD00082

PATIENT
  Age: 70 Year
  Sex: Female
  Weight: 55.782 kg

DRUGS (3)
  1. IMVEXXY [Suspect]
     Active Substance: ESTRADIOL
     Indication: Atrophic vulvovaginitis
     Dosage: 10 ?G, 1X/DAY
     Route: 067
     Dates: start: 20220118
  2. IMVEXXY [Suspect]
     Active Substance: ESTRADIOL
     Indication: Adhesion
  3. REVAREE [Concomitant]
     Dosage: UNK

REACTIONS (3)
  - Vaginal odour [Recovered/Resolved]
  - Vulvovaginal discomfort [Recovered/Resolved]
  - Vaginal discharge [Recovered/Resolved]

NARRATIVE: CASE EVENT DATE: 20220119
